FAERS Safety Report 5939633-X (Version None)
Quarter: 2008Q4

REPORT INFORMATION
  Report Type: 
  Country: None (occurrence: None)
  Receive Date: 20081030
  Receipt Date: 20081030
  Transmission Date: 20090506
  Serious: Yes (Life-Threatening)
  Sender: FDA-Public Use
  Company Number: None

PATIENT
  Age: 69 Year
  Sex: Male
  Weight: 88.2 kg

DRUGS (1)
  1. INVANZ [Suspect]
     Indication: PNEUMONIA
     Dosage: 500 MG QDAY IV
     Route: 042
     Dates: start: 20081018, end: 20081023

REACTIONS (1)
  - COAGULOPATHY [None]
